FAERS Safety Report 4974822-2 (Version None)
Quarter: 2006Q1

REPORT INFORMATION
  Report Type: 
  Country: None (occurrence: None)
  Receive Date: 20060227
  Receipt Date: 20060104
  Transmission Date: 20060701
  Serious: No
  Sender: FDA-Public Use
  Company Number: PHEH2006US00528

PATIENT
  Age: 80 Year
  Sex: Male

DRUGS (1)
  1. ENABLEX [Suspect]
     Indication: MICTURITION URGENCY
     Dates: start: 20051201, end: 20051201

REACTIONS (1)
  - STOMACH DISCOMFORT [None]
